FAERS Safety Report 5021084-6 (Version None)
Quarter: 2006Q2

REPORT INFORMATION
  Report Type: 
  Country: None (occurrence: None)
  Receive Date: 20060608
  Receipt Date: 20060605
  Transmission Date: 20061013
  Serious: Yes (Hospitalization)
  Sender: FDA-Public Use
  Company Number: JP-AVENTIS-200611715JP

PATIENT
  Sex: Male

DRUGS (9)
  1. AMARYL [Suspect]
     Indication: DIABETES MELLITUS
     Route: 048
  2. ACTOS [Concomitant]
     Route: 048
  3. LASIX [Concomitant]
     Route: 048
  4. WARFARIN [Concomitant]
     Route: 048
  5. NU-LOTAN [Concomitant]
     Route: 048
  6. LIPITOR [Concomitant]
     Route: 048
  7. VASOLAN [Concomitant]
     Route: 048
  8. ALLOPURINOL [Concomitant]
     Route: 048
  9. CIPROXAN [Concomitant]
     Route: 048

REACTIONS (1)
  - HYPOGLYCAEMIC COMA [None]
